FAERS Safety Report 22535182 (Version 1)
Quarter: 2023Q2

REPORT INFORMATION
  Report Type: Spontaneous
  Country: IN (occurrence: IN)
  Receive Date: 20230608
  Receipt Date: 20230608
  Transmission Date: 20230721
  Serious: Yes (Death)
  Sender: FDA-Public Use
  Company Number: IN-PFIZER INC-2019408620

PATIENT
  Age: 50 Year
  Sex: Female

DRUGS (1)
  1. CRIZOTINIB [Suspect]
     Active Substance: CRIZOTINIB
     Indication: ALK gene rearrangement positive
     Dosage: 250 MG, 2X/DAY
     Route: 048
     Dates: start: 20190318

REACTIONS (5)
  - Death [Fatal]
  - Furuncle [Unknown]
  - Pleural effusion [Unknown]
  - Dyspnoea [Unknown]
  - Intentional dose omission [Unknown]
